FAERS Safety Report 21309587 (Version 7)
Quarter: 2022Q4

REPORT INFORMATION
  Report Type: Spontaneous
  Country: ES (occurrence: ES)
  Receive Date: 20220908
  Receipt Date: 20221031
  Transmission Date: 20230112
  Serious: Yes (Other)
  Sender: FDA-Public Use
  Company Number: ES-009507513-2209ESP002828

PATIENT
  Age: 15 Year

DRUGS (3)
  1. RALTEGRAVIR POTASSIUM [Suspect]
     Active Substance: RALTEGRAVIR POTASSIUM
     Indication: HIV infection
     Dosage: UNKNOWN DOSE, TWICE DAILY
     Route: 048
  2. ETRAVIRINE [Suspect]
     Active Substance: ETRAVIRINE
     Indication: HIV infection
     Dosage: UNK
  3. DARUNAVIR\RITONAVIR [Suspect]
     Active Substance: DARUNAVIR\RITONAVIR
     Indication: HIV infection
     Dosage: UNK

REACTIONS (2)
  - Pathogen resistance [Unknown]
  - Virologic failure [Not Recovered/Not Resolved]
